FAERS Safety Report 21631931 (Version 1)
Quarter: 2022Q4

REPORT INFORMATION
  Report Type: Report from Study
  Country: US (occurrence: US)
  Receive Date: 20221123
  Receipt Date: 20221123
  Transmission Date: 20230113
  Serious: Yes (Other)
  Sender: FDA-Public Use
  Company Number: US-ABBVIE-4210688

PATIENT
  Sex: Female

DRUGS (1)
  1. HUMIRA [Suspect]
     Active Substance: ADALIMUMAB
     Indication: Uveitis
     Dosage: CF FORM STRENGTH: 40MG
     Route: 058

REACTIONS (4)
  - Cataract [Not Recovered/Not Resolved]
  - Injection site erythema [Unknown]
  - Thyroid function test abnormal [Not Recovered/Not Resolved]
  - Glaucoma [Not Recovered/Not Resolved]
